FAERS Safety Report 10035239 (Version 1)
Quarter: 2014Q1

REPORT INFORMATION
  Report Type: Spontaneous
  Country: US (occurrence: None)
  Receive Date: 20140306
  Receipt Date: 20140306
  Transmission Date: 20141002
  Serious: Yes (Hospitalization, Other)
  Sender: FDA-Public Use
  Company Number: 163-21880-13011654

PATIENT
  Age: 62 Year
  Sex: Female
  Weight: 103.15 kg

DRUGS (24)
  1. REVLIMID [Suspect]
     Indication: MYELODYSPLASTIC SYNDROME
     Route: 048
     Dates: start: 20111210
  2. ONDASETRON (ONDANSETRON) [Concomitant]
  3. IMODIUM (LOPERAMIDE HYDROCHLORIDE) (LOPERAMIDE) [Concomitant]
  4. CENTURY WITH LUTEIN (ALL OTHER THERAPEUTIC PRODUCTS) [Concomitant]
  5. GLUCOSAMINE CHONDROITIN COMPLEX ADVANCED (OSTEOGESIC PLUS) [Concomitant]
  6. VITAMIN D (ERGOCALCIFEROL) [Concomitant]
  7. NEXIUM (ESOMEPRAZOLE) [Concomitant]
  8. CHLORTHALIDONE (CHLORTALIDONE) [Concomitant]
  9. FISH OIL (FISH OIL) [Concomitant]
  10. MINOCIN (MINOCYCLINE) [Concomitant]
  11. PROBIOTIC (BIFIDOBACTERIUM LACTIS) [Concomitant]
  12. MULTIVITAMINS (MULTIVITAMINS) [Concomitant]
  13. VIVELLE DOT (ESTRADIOL) TRANS-THERAPEUTIC-SYSTEM [Concomitant]
  14. SIMVASTATIN (SIMVASTATIN) [Concomitant]
  15. SYNTHROID (LEVOTHYROXINE SODIUM) [Concomitant]
  16. DOCUSATE (DOCUSATE) [Concomitant]
  17. METHADONE (METHADONE) [Concomitant]
  18. CITRACAL D (CITRACAL + D) [Concomitant]
  19. TOPROL XL (METOPROLOL SUCCINATE) (100 MILLIGRAM) (METOPROLOL SUCCINATE) [Concomitant]
  20. HYDROCHLOROTHIAZIDE (HYDROCHLOROTHIAZIDE) [Concomitant]
  21. MIRALAX (MACROGOL) [Concomitant]
  22. STOOL SOFTENER (DOCUSATE SODIUM) [Concomitant]
  23. CALCIUM + VITAMIN D (LEKOVIT CA) [Concomitant]
  24. CYMBALTA [Concomitant]

REACTIONS (3)
  - Haemoglobin decreased [None]
  - Myelodysplastic syndrome [None]
  - Disease progression [None]
